FAERS Safety Report 4511346-0 (Version None)
Quarter: 2004Q4

REPORT INFORMATION
  Report Type: 
  Country: None (occurrence: None)
  Receive Date: 20041123
  Receipt Date: 20041123
  Transmission Date: 20050328
  Serious: Yes (Life-Threatening, Hospitalization, Disabling, Other)
  Sender: FDA-Public Use
  Company Number: None

PATIENT
  Age: 38 Year
  Sex: Male
  Weight: 99.7913 kg

DRUGS (13)
  1. CORICIDIN D SRT [Suspect]
     Indication: NASOPHARYNGITIS
     Dosage: ORAL
     Route: 048
  2. CHLOR-TRIMETON SINUS (CHLORPHENIRAMINE/PHENYLPROP/ACETA TABLETS [Suspect]
     Indication: NASOPHARYNGITIS
     Dosage: ORAL
     Route: 048
  3. ALKA-SELTZER PLUS COLD MEDICINE [Concomitant]
  4. HALLS DROPS [Concomitant]
  5. DEXATRIM [Concomitant]
  6. ALKA-SELTZER PLUS NIGHT TIME COLD [Concomitant]
  7. ALKA-SELTZER PLUS ALLERGY MEDICINE [Concomitant]
  8. CONTAC [Concomitant]
  9. TAVIST D [Concomitant]
  10. BC POWDER [Concomitant]
  11. DRISTAN [Concomitant]
  12. DIMETAPP [Concomitant]
  13. TRIAMINIC ALLERGY TABLETS [Concomitant]

REACTIONS (9)
  - AMNESIA [None]
  - BRAIN STEM HAEMORRHAGE [None]
  - CEREBROVASCULAR ACCIDENT [None]
  - HEMIPARESIS [None]
  - MENTAL DISORDER [None]
  - MYOCARDIAL INFARCTION [None]
  - PAIN [None]
  - THROMBOTIC STROKE [None]
  - VISUAL DISTURBANCE [None]
